FAERS Safety Report 11279270 (Version 4)
Quarter: 2016Q2

REPORT INFORMATION
  Report Type: Spontaneous
  Country: US (occurrence: US)
  Receive Date: 20150717
  Receipt Date: 20160527
  Transmission Date: 20160815
  Serious: No
  Sender: FDA-Public Use
  Company Number: US-PFIZER INC-2015238395

PATIENT
  Sex: Female

DRUGS (9)
  1. DIAZEPAM. [Suspect]
     Active Substance: DIAZEPAM
     Dosage: 3/4 OF A TABLET (EACH TABLET 2MG) ONCE A DAY AS NEEDED
  2. ACYCLOVIR. [Suspect]
     Active Substance: ACYCLOVIR
     Indication: HERPES VIRUS INFECTION
     Dosage: 400MG A COUPLE A DAY
     Dates: start: 1985
  3. CLOTRIMAZOLE. [Suspect]
     Active Substance: CLOTRIMAZOLE
     Dosage: UNK
  4. PAROXETINE. [Suspect]
     Active Substance: PAROXETINE
     Dosage: UNK
  5. OXYCODONE [Suspect]
     Active Substance: OXYCODONE
     Indication: OSTEOPOROSIS
     Dosage: 15 MG, 2X/DAY
  6. CELEBREX [Suspect]
     Active Substance: CELECOXIB
     Indication: OSTEOPOROSIS
     Dosage: 200 MG, 1X/DAY
  7. TRIAZOLAM. [Suspect]
     Active Substance: TRIAZOLAM
     Indication: SLEEP DISORDER
     Dosage: 0.25 MG, 1X/DAY
  8. NEXIUM 24HR [Suspect]
     Active Substance: ESOMEPRAZOLE MAGNESIUM
     Dosage: UNK
  9. PHENOBARBITAL. [Suspect]
     Active Substance: PHENOBARBITAL
     Dosage: UNK

REACTIONS (1)
  - Drug hypersensitivity [Unknown]
